FAERS Safety Report 15391101 (Version 1)
Quarter: 2018Q3

REPORT INFORMATION
  Report Type: Spontaneous
  Country: US (occurrence: US)
  Receive Date: 20180917
  Receipt Date: 20180917
  Transmission Date: 20181010
  Serious: Yes (Other)
  Sender: FDA-Public Use
  Company Number: US-TARO-2018TAR00652

PATIENT
  Age: 63 Year
  Sex: Female

DRUGS (1)
  1. PHENYTOIN ORAL SUSPENSION USP 125 MG/5ML [Suspect]
     Active Substance: PHENYTOIN

REACTIONS (4)
  - Drug level below therapeutic [Unknown]
  - Loss of consciousness [Recovered/Resolved]
  - Drug ineffective [Unknown]
  - Road traffic accident [Recovered/Resolved]

NARRATIVE: CASE EVENT DATE: 20180508
